FAERS Safety Report 8774804 (Version 1)
Quarter: 2012Q4

REPORT INFORMATION
  Report Type: Report from Study
  Country: JP (occurrence: JP)
  Receive Date: 20120910
  Receipt Date: 20120910
  Transmission Date: 20130627
  Serious: Yes (Death, Life-Threatening)
  Sender: FDA-Public Use
  Company Number: JP-MERCK-1202USA01587

PATIENT

DRUGS (10)
  1. ZOLINZA [Suspect]
     Indication: MYCOSIS FUNGOIDES
     Dosage: 400 mg, qd
     Route: 048
     Dates: start: 20111111, end: 20111115
  2. ZOLINZA [Suspect]
     Dosage: 100 mg, qd
     Route: 048
     Dates: start: 20111206, end: 20111215
  3. ZOLINZA [Suspect]
     Dosage: 200 mg, qd
     Route: 048
     Dates: start: 20111216, end: 20120124
  4. ANTEBATE [Concomitant]
     Indication: MYCOSIS FUNGOIDES
     Dosage: Divided dose frequency U. Formulation: OIT
     Route: 061
     Dates: start: 20111027, end: 20120125
  5. GLUFAST [Concomitant]
     Indication: DIABETES MELLITUS
     Dosage: 10 mg, tid
     Route: 048
  6. ALLELOCK [Concomitant]
     Indication: PRURITUS
     Dosage: 5 mg, qd
     Route: 048
  7. TAKEPRON [Concomitant]
     Indication: PROPHYLAXIS
     Dosage: 15 mg, qd
     Route: 048
  8. LOXONIN [Concomitant]
     Indication: MYCOSIS FUNGOIDES
     Dosage: 60 mg, bid
     Route: 048
  9. MK-9350 [Concomitant]
     Indication: MYCOSIS FUNGOIDES
     Dosage: 5 mg, bid
     Route: 048
     Dates: start: 20111228
  10. MK-9350 [Concomitant]
     Dosage: Daily dosage unknown
     Route: 048

REACTIONS (2)
  - Acute respiratory failure [Fatal]
  - Renal disorder [Recovering/Resolving]
